FAERS Safety Report 5005649-3 (Version None)
Quarter: 2006Q2

REPORT INFORMATION
  Report Type: 
  Country: None (occurrence: None)
  Receive Date: 20060517
  Receipt Date: 20060517
  Transmission Date: 20061013
  Serious: Yes (Hospitalization)
  Sender: FDA-Public Use
  Company Number: None

PATIENT
  Age: 85 Year
  Sex: Male

DRUGS (8)
  1. LISINOPRIL [Suspect]
     Indication: HYPERTENSION
     Dosage: 5MG QD
     Dates: start: 20031101
  2. METOPROLOL TARTRATE [Suspect]
     Indication: HYPERTENSION
     Dosage: 12.5MG  QD
     Dates: start: 20030101
  3. SYNTHROID [Concomitant]
  4. SUDAFED [Concomitant]
  5. AMIODARONE [Concomitant]
  6. ISOSORBIDE [Concomitant]
  7. ZOCOR [Concomitant]
  8. NITROGLYCERIN [Concomitant]

REACTIONS (1)
  - HYPOTENSION [None]
